FAERS Safety Report 24796114 (Version 1)
Quarter: 2025Q1

REPORT INFORMATION
  Report Type: Other
  Country: FR (occurrence: FR)
  Receive Date: 20250101
  Receipt Date: 20250101
  Transmission Date: 20250409
  Serious: Yes (Life-Threatening)
  Sender: ZYDUS PHARM
  Company Number: None

PATIENT

DRUGS (5)
  1. LANSOPRAZOLE [Suspect]
     Active Substance: LANSOPRAZOLE
     Indication: Poisoning deliberate
     Route: 048
     Dates: start: 20241123, end: 20241123
  2. ZOPICLONE [Suspect]
     Active Substance: ZOPICLONE
     Indication: Poisoning deliberate
     Route: 048
     Dates: start: 20241123, end: 20241123
  3. ATARAX [Suspect]
     Active Substance: HYDROXYZINE HYDROCHLORIDE
     Indication: Poisoning deliberate
     Route: 048
     Dates: start: 20241123, end: 20241123
  4. KETOPROFEN [Suspect]
     Active Substance: KETOPROFEN
     Indication: Poisoning deliberate
     Route: 048
     Dates: start: 20241123, end: 20241123
  5. LOXAPINE SUCCINATE [Suspect]
     Active Substance: LOXAPINE SUCCINATE
     Indication: Poisoning deliberate
     Route: 048
     Dates: start: 20241123, end: 20241123

REACTIONS (2)
  - Coma [Recovered/Resolved]
  - Vomiting [Recovered/Resolved]

NARRATIVE: CASE EVENT DATE: 20241123
